FAERS Safety Report 5096636-8 (Version None)
Quarter: 2006Q3

REPORT INFORMATION
  Report Type: 
  Country: None (occurrence: None)
  Receive Date: 20060831
  Receipt Date: 20060821
  Transmission Date: 20061208
  Serious: Yes (Other)
  Sender: FDA-Public Use
  Company Number: 2006US-03349

PATIENT
  Age: 53 Year
  Sex: Female

DRUGS (1)
  1. CIPROFLOXACIN [Suspect]

REACTIONS (3)
  - ASTHENIA [None]
  - OEDEMA PERIPHERAL [None]
  - PAIN [None]
